FAERS Safety Report 6375244-2 (Version None)
Quarter: 2009Q3

REPORT INFORMATION
  Report Type: 
  Country: None (occurrence: None)
  Receive Date: 20090924
  Receipt Date: 20090917
  Transmission Date: 20100115
  Serious: Yes (Death, Other)
  Sender: FDA-Public Use
  Company Number: BR-PFIZER INC-2009265907

PATIENT
  Age: 70 Year

DRUGS (1)
  1. LIPITOR [Suspect]
     Indication: BLOOD CHOLESTEROL
     Dosage: 10 MG, 1X/DAY
     Route: 048
     Dates: start: 20060101

REACTIONS (4)
  - ANAEMIA [None]
  - CARDIAC DISORDER [None]
  - DEATH [None]
  - TRANSFUSION [None]
